FAERS Safety Report 25975854 (Version 2)
Quarter: 2025Q4

REPORT INFORMATION
  Report Type: Report from Study
  Country: US (occurrence: US)
  Receive Date: 20251029
  Receipt Date: 20251205
  Transmission Date: 20260118
  Serious: Yes (Life-Threatening, Hospitalization, Disabling, Other)
  Sender: ALEXION PHARMACEUTICALS
  Company Number: US-AstraZeneca-CH-00980477A

PATIENT
  Sex: Male

DRUGS (1)
  1. SOLIRIS [Suspect]
     Active Substance: ECULIZUMAB
     Indication: Myasthenia gravis
     Dosage: UNK
     Route: 065

REACTIONS (26)
  - Dyspnoea [Unknown]
  - Diaphragmatic paralysis [Unknown]
  - Sitting disability [Unknown]
  - Bedridden [Unknown]
  - Acute respiratory failure [Unknown]
  - Urinary tract infection [Unknown]
  - Thrombosis [Unknown]
  - Skin cancer [Unknown]
  - Dementia [Unknown]
  - Hypoxia [Unknown]
  - Hip fracture [Unknown]
  - Aortic injury [Unknown]
  - Pulmonary fibrosis [Unknown]
  - Pneumonia [Unknown]
  - Dysphagia [Unknown]
  - Acne [Unknown]
  - Fall [Unknown]
  - Hair growth abnormal [Unknown]
  - Head injury [Unknown]
  - Spinal column injury [Unknown]
  - Neck injury [Unknown]
  - Hypervolaemia [Unknown]
  - Somnolence [Unknown]
  - Asthenia [Unknown]
  - Fatigue [Unknown]
  - Muscular weakness [Unknown]
